FAERS Safety Report 7236004-3 (Version None)
Quarter: 2011Q1

REPORT INFORMATION
  Report Type: 
  Country: None (occurrence: None)
  Receive Date: 20110111
  Receipt Date: 20110104
  Transmission Date: 20110831
  Serious: Yes (Hospitalization)
  Sender: FDA-Public Use
  Company Number: 2011SP000252

PATIENT
  Age: 33 Year
  Sex: Male
  Weight: 89.5 kg

DRUGS (2)
  1. TEMOZOLOMIDE [Suspect]
     Indication: MALIGNANT GLIOMA
     Dosage: 1400 MG; PO
     Route: 048
     Dates: start: 20100907, end: 20101021
  2. DECADRON [Concomitant]

REACTIONS (5)
  - RASH [None]
  - BACTERIAL INFECTION [None]
  - DEHYDRATION [None]
  - WEIGHT DECREASED [None]
  - CYSTITIS HAEMORRHAGIC [None]
